FAERS Safety Report 5934248-1 (Version None)
Quarter: 2008Q4

REPORT INFORMATION
  Report Type: 
  Country: None (occurrence: None)
  Receive Date: 20081028
  Receipt Date: 20081028
  Transmission Date: 20090506
  Serious: Yes (Hospitalization)
  Sender: FDA-Public Use
  Company Number: None

PATIENT
  Sex: Female
  Weight: 103.5 kg

DRUGS (1)
  1. TEMOZOLOMIDE [Suspect]
     Dosage: 4640 MG

REACTIONS (11)
  - BRAIN COMPRESSION [None]
  - BRAIN OEDEMA [None]
  - C-REACTIVE PROTEIN INCREASED [None]
  - DISEASE PROGRESSION [None]
  - ELECTROENCEPHALOGRAM ABNORMAL [None]
  - FALL [None]
  - FATIGUE [None]
  - NEOPLASM PROGRESSION [None]
  - PARTIAL SEIZURES [None]
  - PNEUMONIA [None]
  - TONIC CLONIC MOVEMENTS [None]
